FAERS Safety Report 7402136-X (Version None)
Quarter: 2011Q2

REPORT INFORMATION
  Report Type: 
  Country: None (occurrence: None)
  Receive Date: 20110408
  Receipt Date: 20110405
  Transmission Date: 20111010
  Serious: Yes (Hospitalization, Other)
  Sender: FDA-Public Use
  Company Number: US-AMGEN-USASP2011018290

PATIENT
  Age: 68 Year
  Sex: Male

DRUGS (7)
  1. DANAZOL [Concomitant]
     Indication: IDIOPATHIC THROMBOCYTOPENIC PURPURA
  2. NPLATE [Suspect]
     Indication: IDIOPATHIC THROMBOCYTOPENIC PURPURA
     Dates: start: 20110111
  3. AMIODARONE [Concomitant]
  4. CORTICOSTEROIDS [Concomitant]
     Indication: IDIOPATHIC THROMBOCYTOPENIC PURPURA
  5. METOPROLOL [Concomitant]
  6. PREDNISONE [Concomitant]
     Dosage: 40 MG, QD
  7. EPOGEN [Concomitant]
     Dosage: 80000 UNIT, QWK

REACTIONS (7)
  - RASH GENERALISED [None]
  - THERAPEUTIC RESPONSE DECREASED [None]
  - ASTHENIA [None]
  - RESPIRATORY TRACT INFECTION [None]
  - RASH MACULAR [None]
  - DYSPNOEA [None]
  - PANNICULITIS [None]
